FAERS Safety Report 6227196-3 (Version None)
Quarter: 2009Q2

REPORT INFORMATION
  Report Type: 
  Country: None (occurrence: None)
  Receive Date: 20090612
  Receipt Date: 20090602
  Transmission Date: 20091009
  Serious: No
  Sender: FDA-Public Use
  Company Number: US-SOLVAY-00209003020

PATIENT
  Age: 14440 Day
  Sex: Female
  Weight: 90.909 kg

DRUGS (1)
  1. ANDROGEL [Suspect]
     Indication: ACCIDENTAL EXPOSURE
     Dosage: DAILY DOSE: 5 GRAM(S) ; AS USED: 4 PUMPS
     Route: 062
     Dates: start: 20090401

REACTIONS (1)
  - BLOOD TESTOSTERONE INCREASED [None]
